FAERS Safety Report 21548680 (Version 2)
Quarter: 2023Q2

REPORT INFORMATION
  Report Type: Report from Study
  Country: US (occurrence: US)
  Receive Date: 20221103
  Receipt Date: 20230505
  Transmission Date: 20230722
  Serious: No
  Sender: FDA-Public Use
  Company Number: US-ABBVIE-22K-163-4420421-00

PATIENT
  Sex: Male

DRUGS (2)
  1. IMBRUVICA [Suspect]
     Active Substance: IBRUTINIB
     Indication: Chronic lymphocytic leukaemia
     Route: 048
     Dates: start: 20220418
  2. IMBRUVICA [Suspect]
     Active Substance: IBRUTINIB
     Indication: Chronic lymphocytic leukaemia
     Route: 048

REACTIONS (21)
  - Nausea [Unknown]
  - Chest pain [Unknown]
  - Face injury [Unknown]
  - Diarrhoea [Unknown]
  - Suture insertion [Unknown]
  - Dyspnoea [Unknown]
  - Depression [Unknown]
  - Asthenia [Unknown]
  - Increased tendency to bruise [Unknown]
  - Haemorrhagic diathesis [Unknown]
  - Bone pain [Unknown]
  - Pneumonia [Unknown]
  - White blood cell count decreased [Unknown]
  - Pain [Unknown]
  - Contusion [Not Recovered/Not Resolved]
  - Anxiety [Unknown]
  - Haemorrhage [Unknown]
  - Onychoclasis [Unknown]
  - Nail infection [Unknown]
  - Fatigue [Unknown]
  - Myalgia [Unknown]
